FAERS Safety Report 4802772-0 (Version None)
Quarter: 2005Q4

REPORT INFORMATION
  Report Type: 
  Country: None (occurrence: None)
  Receive Date: 20051017
  Receipt Date: 20051017
  Transmission Date: 20060501
  Serious: Yes (Hospitalization)
  Sender: FDA-Public Use
  Company Number: None

PATIENT
  Age: 54 Year
  Sex: Male

DRUGS (10)
  1. HEPARIN [Suspect]
     Indication: GASTROINTESTINAL DISORDER
     Dosage: 18 UNITS/KG/HR IV
     Route: 042
     Dates: start: 20050706, end: 20050710
  2. RANITIDINE [Suspect]
     Indication: PROPHYLAXIS
     Dosage: 50MG Q12 IV
     Route: 042
     Dates: start: 20050706, end: 20050708
  3. DICLOFENAC [Concomitant]
  4. FOSINOPRIL SODIUM [Concomitant]
  5. GABAPENTIN [Concomitant]
  6. GUAIFENESIN [Concomitant]
  7. INSULIN [Concomitant]
  8. PRILOSEC [Concomitant]
  9. ZOLOFT [Concomitant]
  10. KEFLEX [Concomitant]

REACTIONS (3)
  - ANTIBODY TEST POSITIVE [None]
  - HEPARIN-INDUCED THROMBOCYTOPENIA TEST [None]
  - PLATELET COUNT DECREASED [None]
